FAERS Safety Report 10869624 (Version 1)
Quarter: 2015Q1

REPORT INFORMATION
  Report Type: Spontaneous
  Country: KP (occurrence: KP)
  Receive Date: 20150226
  Receipt Date: 20150226
  Transmission Date: 20150721
  Serious: Yes (Death, Other)
  Sender: FDA-Public Use
  Company Number: KP-CIPLA LTD.-2015KP01408

PATIENT

DRUGS (2)
  1. S-1 [Suspect]
     Active Substance: GIMERACIL\OTERACIL\TEGAFUR
     Indication: COLORECTAL CANCER
     Dosage: 40MG/M2 TWICE DAILY ON DAYS 1-14 AND 21-35
  2. IRINOTECAN [Suspect]
     Active Substance: IRINOTECAN
     Indication: COLORECTAL CANCER
     Dosage: 150 MG/M2, INTRAVENOUS INFUSION ON DAYS 1, 15, AND 29.

REACTIONS (4)
  - Death [Fatal]
  - Confusional state [Unknown]
  - Abdominal pain [Unknown]
  - Pyrexia [Unknown]
